FAERS Safety Report 8901043 (Version 1)
Quarter: 2012Q4

REPORT INFORMATION
  Report Type: 
  Country: DE (occurrence: GB)
  Receive Date: 20121109
  Receipt Date: 20121109
  Transmission Date: 20130627
  Serious: Yes (Other)
  Sender: FDA-Public Use
  Company Number: GB-BRISTOL-MYERS SQUIBB COMPANY-17092131

PATIENT
  Age: 49 Year
  Sex: Male
  Weight: 112 kg

DRUGS (10)
  1. ARIPIPRAZOLE [Suspect]
     Dates: start: 20120814
  2. METFORMIN HCL [Suspect]
     Dates: start: 20120730
  3. ACETYLSALICYLIC ACID [Suspect]
     Dates: start: 20120730
  4. BISOPROLOL [Suspect]
     Dates: start: 20120730
  5. FUROSEMIDE [Suspect]
     Dates: start: 20120730
  6. GLICLAZIDE [Suspect]
     Dates: start: 20120801
  7. LOSARTAN [Suspect]
     Dates: start: 20120730
  8. MELATONIN [Suspect]
     Dates: start: 20120807
  9. ERYTHROMYCIN [Concomitant]
     Dates: start: 20120924
  10. LEVOTHYROXINE [Concomitant]
     Dates: start: 20120730

REACTIONS (2)
  - Hyponatraemia [Recovered/Resolved]
  - Oedema [Unknown]
